FAERS Safety Report 8185859-7 (Version None)
Quarter: 2012Q1

REPORT INFORMATION
  Report Type: 
  Country: None (occurrence: None)
  Receive Date: 20120305
  Receipt Date: 20120223
  Transmission Date: 20120608
  Serious: Yes (Hospitalization)
  Sender: FDA-Public Use
  Company Number: JP-ASTRAZENECA-2012SE12622

PATIENT
  Age: 29 Year
  Sex: Female

DRUGS (4)
  1. BUPIVACAINE HCL [Suspect]
     Indication: SPINAL ANAESTHESIA
     Route: 037
  2. DROPERIDOL [Suspect]
     Indication: EPIDURAL ANAESTHESIA
     Route: 008
  3. MORPHINE HYDROCHLORIDE [Suspect]
     Indication: EPIDURAL ANAESTHESIA
     Route: 008
  4. ROPIVACAINE HYDROCHLORIDE [Suspect]
     Indication: EPIDURAL ANAESTHESIA
     Route: 008

REACTIONS (3)
  - ARACHNOIDITIS [None]
  - SYRINGOMYELIA [None]
  - ARACHNOID CYST [None]
